FAERS Safety Report 5195489-7 (Version None)
Quarter: 2006Q4

REPORT INFORMATION
  Report Type: 
  Country: None (occurrence: None)
  Receive Date: 20061222
  Receipt Date: 20061222
  Transmission Date: 20070319
  Serious: Yes (Other)
  Sender: FDA-Public Use
  Company Number: None

PATIENT
  Sex: Male
  Weight: 86.1834 kg

DRUGS (1)
  1. ZOCOR [Suspect]
     Indication: HYPERLIPIDAEMIA
     Dosage: 20MG  DAILY  PO
     Route: 048
     Dates: start: 20051101, end: 20060719

REACTIONS (4)
  - ASTHENIA [None]
  - FATIGUE [None]
  - HEPATITIS ACUTE [None]
  - MYALGIA [None]
